FAERS Safety Report 8406781-4 (Version None)
Quarter: 2012Q2

REPORT INFORMATION
  Report Type: 
  Country: None (occurrence: None)
  Receive Date: 20120604
  Receipt Date: 20120524
  Transmission Date: 20120825
  Serious: Yes (Hospitalization)
  Sender: FDA-Public Use
  Company Number: JP-SANOFI-AVENTIS-2011SA083937

PATIENT
  Age: 56 Year
  Sex: Male
  Weight: 68.7 kg

DRUGS (17)
  1. THEO-DUR [Concomitant]
     Route: 048
     Dates: start: 20090106, end: 20090126
  2. ASPIRIN [Concomitant]
     Indication: ANTIPLATELET THERAPY
     Dates: start: 20080814
  3. ASTOMIN [Concomitant]
     Route: 048
     Dates: start: 20090106, end: 20090126
  4. ATORVASTATIN CALCIUM [Concomitant]
     Route: 048
     Dates: start: 20081009
  5. CLOPIDOGREL BISULFATE [Suspect]
     Route: 065
     Dates: start: 20081009, end: 20081009
  6. ASPIRIN [Concomitant]
     Route: 048
     Dates: start: 20080814
  7. ENALAPRIL MALEATE [Concomitant]
     Route: 048
     Dates: start: 20081009
  8. FLUTICASONE PROPIONATE/SALMETEROL [Concomitant]
     Route: 055
     Dates: start: 20090106, end: 20090126
  9. CLOPIDOGREL BISULFATE [Suspect]
     Route: 065
     Dates: start: 20081010
  10. AZITHROMYCIN [Concomitant]
     Route: 048
     Dates: start: 20090106, end: 20090108
  11. TORSEMIDE [Concomitant]
     Route: 048
     Dates: start: 20081009
  12. AMARYL [Concomitant]
     Route: 048
     Dates: start: 20081009
  13. CARVEDILOL [Concomitant]
     Route: 048
     Dates: start: 20081010, end: 20081016
  14. DASEN [Concomitant]
     Route: 048
     Dates: start: 20090106, end: 20090126
  15. MIGLITOL [Concomitant]
     Route: 048
     Dates: start: 20081009, end: 20090203
  16. ALLOPURINOL [Concomitant]
     Indication: HYPERURICAEMIA
     Route: 048
     Dates: start: 20081010
  17. CARVEDILOL [Concomitant]
     Route: 048
     Dates: start: 20091017

REACTIONS (3)
  - DIABETES MELLITUS [None]
  - INTESTINAL OBSTRUCTION [None]
  - ANGINA PECTORIS [None]
